FAERS Safety Report 23095958 (Version 1)
Quarter: 2023Q4

REPORT INFORMATION
  Report Type: Spontaneous
  Country: JP (occurrence: JP)
  Receive Date: 20231023
  Receipt Date: 20231023
  Transmission Date: 20240110
  Serious: Yes (Other)
  Sender: FDA-Public Use
  Company Number: JP-Merck Healthcare KGaA-2023481277

PATIENT
  Age: 58 Year
  Sex: Male

DRUGS (2)
  1. ERBITUX [Suspect]
     Active Substance: CETUXIMAB
     Indication: Colon cancer metastatic
     Dosage: UNK UNK, UNKNOWN
     Route: 041
  2. ENCORAFENIB [Suspect]
     Active Substance: ENCORAFENIB
     Indication: Colon cancer metastatic
     Dosage: UNK UNK, UNKNOWN
     Route: 065

REACTIONS (4)
  - Leukopenia [Unknown]
  - Malignant neoplasm progression [Unknown]
  - Anaemia [Unknown]
  - Decreased appetite [Unknown]
